FAERS Safety Report 14526530 (Version 1)
Quarter: 2018Q1

REPORT INFORMATION
  Report Type: Spontaneous
  Country: US (occurrence: US)
  Receive Date: 20180212
  Receipt Date: 20180212
  Transmission Date: 20180509
  Serious: Yes (Death)
  Sender: FDA-Public Use
  Company Number: None

PATIENT
  Age: 49 Year
  Sex: Female

DRUGS (5)
  1. DIAZEPAM. [Concomitant]
     Active Substance: DIAZEPAM
  2. OMEPRAZOLE. [Concomitant]
     Active Substance: OMEPRAZOLE
  3. LYRICA [Concomitant]
     Active Substance: PREGABALIN
  4. CAPECITABINE 500 MG MYLAN [Suspect]
     Active Substance: CAPECITABINE
     Indication: BREAST CANCER
     Dosage: FREQUENCY - 4 TS BID FOR 14 DAY
     Route: 048
     Dates: start: 20170505, end: 20170830
  5. VALPORIC ACID [Concomitant]
     Active Substance: VALPROIC ACID
     Indication: BREAST CANCER

REACTIONS (1)
  - Death [None]

NARRATIVE: CASE EVENT DATE: 2018
